FAERS Safety Report 4292263-0 (Version None)
Quarter: 2004Q1

REPORT INFORMATION
  Report Type: 
  Country: None (occurrence: None)
  Receive Date: 20040211
  Receipt Date: 20040203
  Transmission Date: 20041129
  Serious: Yes (Hospitalization)
  Sender: FDA-Public Use
  Company Number: FR-GLAXOSMITHKLINE-B0321856A

PATIENT
  Age: 40 Year
  Sex: Female

DRUGS (9)
  1. FORTUM [Suspect]
     Indication: SUPERINFECTION LUNG
     Dosage: 1G THREE TIMES PER DAY
     Route: 042
     Dates: start: 20031130
  2. CIFLOX [Suspect]
     Indication: SUPERINFECTION LUNG
     Dosage: 1UNIT TWICE PER DAY
     Route: 048
     Dates: start: 20031130
  3. TOBRAMYCINE COLLYRE [Concomitant]
     Route: 065
  4. SPORANOX [Concomitant]
     Route: 065
  5. ZITHROMAX [Concomitant]
     Route: 065
  6. MUCOMYST [Concomitant]
     Route: 065
  7. SERETIDE [Concomitant]
     Route: 065
  8. VENTOLIN DISKUS [Concomitant]
     Route: 065
  9. VORICONAZOLE [Concomitant]
     Indication: SUPERINFECTION LUNG
     Route: 048
     Dates: start: 20031201

REACTIONS (10)
  - BIOPSY BONE MARROW ABNORMAL [None]
  - FATIGUE [None]
  - GENERAL PHYSICAL HEALTH DETERIORATION [None]
  - HAEMOGLOBIN DECREASED [None]
  - LEUKOPENIA [None]
  - LUNG DISORDER [None]
  - MEGALOBLASTS INCREASED [None]
  - NEUTROPENIA [None]
  - PLATELET COUNT DECREASED [None]
  - PYREXIA [None]
